FAERS Safety Report 7489459-3 (Version None)
Quarter: 2011Q2

REPORT INFORMATION
  Report Type: 
  Country: None (occurrence: None)
  Receive Date: 20110518
  Receipt Date: 20110511
  Transmission Date: 20111010
  Serious: Yes (Hospitalization)
  Sender: FDA-Public Use
  Company Number: US-US-EMD SERONO, INC.-232568J10USA

PATIENT
  Sex: Female

DRUGS (4)
  1. REBIF [Suspect]
     Indication: MULTIPLE SCLEROSIS
     Route: 058
     Dates: start: 20080915
  2. REBIF [Suspect]
     Route: 058
     Dates: end: 20100101
  3. ACETAMINOPHEN [Concomitant]
     Indication: PREMEDICATION
     Route: 065
  4. REBIF [Suspect]
     Route: 058

REACTIONS (5)
  - GASTROENTERITIS SALMONELLA [None]
  - FEELING HOT [None]
  - IRRITABLE BOWEL SYNDROME [None]
  - IMPAIRED GASTRIC EMPTYING [None]
  - PANIC ATTACK [None]
